FAERS Safety Report 5825734-3 (Version None)
Quarter: 2008Q3

REPORT INFORMATION
  Report Type: 
  Country: None (occurrence: None)
  Receive Date: 20080729
  Receipt Date: 20080715
  Transmission Date: 20090109
  Serious: Yes (Other)
  Sender: FDA-Public Use
  Company Number: TR-BAYER-200822852GPV

PATIENT
  Age: 21 Year
  Sex: Male

DRUGS (3)
  1. ASPIRIN [Suspect]
     Indication: INTENTIONAL DRUG MISUSE
     Dosage: UNIT DOSE: 300 MG
     Route: 042
     Dates: start: 19950101, end: 20030101
  2. PERMASOL [Suspect]
     Indication: INTENTIONAL DRUG MISUSE
     Dosage: UNIT DOSE: 250 MG
     Route: 042
     Dates: start: 19950101, end: 20030101
  3. EFEDRIN [Suspect]
     Indication: INTENTIONAL DRUG MISUSE
     Dosage: UNIT DOSE: 50 MG
     Route: 042
     Dates: start: 19950101, end: 20030101

REACTIONS (7)
  - BRADYKINESIA [None]
  - DYSARTHRIA [None]
  - DYSKINESIA [None]
  - DYSTONIA [None]
  - MUSCLE RIGIDITY [None]
  - SPASMODIC DYSPHONIA [None]
  - TREMOR [None]
